FAERS Safety Report 19898920 (Version 3)
Quarter: 2021Q4

REPORT INFORMATION
  Report Type: Spontaneous
  Country: US (occurrence: US)
  Receive Date: 20210929
  Receipt Date: 20211104
  Transmission Date: 20220303
  Serious: Yes (Other)
  Sender: FDA-Public Use
  Company Number: US-PFIZER INC-202101247601

PATIENT
  Age: 67 Year
  Sex: Male
  Weight: 74.38 kg

DRUGS (2)
  1. GABAPENTIN [Suspect]
     Active Substance: GABAPENTIN
     Indication: Arthralgia
     Dosage: 300 MG, DAILY
     Dates: start: 20210826, end: 20210908
  2. GABAPENTIN [Suspect]
     Active Substance: GABAPENTIN
     Indication: Myalgia

REACTIONS (10)
  - Atrial fibrillation [Not Recovered/Not Resolved]
  - Thyroiditis [Not Recovered/Not Resolved]
  - Dizziness [Unknown]
  - Fall [Unknown]
  - Inflammation [Not Recovered/Not Resolved]
  - Platelet count increased [Unknown]
  - Blood immunoglobulin A increased [Unknown]
  - Blood immunoglobulin E increased [Unknown]
  - Alpha globulin increased [Unknown]
  - Off label use [Unknown]

NARRATIVE: CASE EVENT DATE: 20210801
